FAERS Safety Report 7226781-X (Version None)
Quarter: 2011Q1

REPORT INFORMATION
  Report Type: 
  Country: None (occurrence: None)
  Receive Date: 20110110
  Receipt Date: 20110110
  Transmission Date: 20110831
  Serious: Yes (Hospitalization)
  Sender: FDA-Public Use
  Company Number: None

PATIENT
  Sex: Male
  Weight: 127 kg

DRUGS (6)
  1. METHOTREXATE [Suspect]
     Dosage: 45 MG
  2. VINCRISTINE SULFATE [Suspect]
     Dosage: 8 MG
  3. CYCLOPHOSPHAMIDE [Suspect]
     Dosage: 2530 MG
  4. DOXORUBICIN HYDROCHLORIDE [Suspect]
     Dosage: 192 MG
  5. PEG-L- ASPARAGINASE (K-H) [Suspect]
     Dosage: 5000 IU
  6. THIOGUANINE [Suspect]
     Dosage: 1440 MG

REACTIONS (6)
  - NAUSEA [None]
  - PANCYTOPENIA [None]
  - FEBRILE NEUTROPENIA [None]
  - MENINGITIS STAPHYLOCOCCAL [None]
  - DIARRHOEA [None]
  - VOMITING [None]
